FAERS Safety Report 5234077-0 (Version None)
Quarter: 2007Q1

REPORT INFORMATION
  Report Type: 
  Country: None (occurrence: None)
  Receive Date: 20070208
  Receipt Date: 20070131
  Transmission Date: 20070707
  Serious: Yes (Hospitalization)
  Sender: FDA-Public Use
  Company Number: PH-ABBOTT-07P-128-0357769-00

PATIENT
  Age: 27 Year
  Sex: Female

DRUGS (5)
  1. VALPROIC ACID [Suspect]
     Indication: BIPOLAR I DISORDER
     Route: 048
     Dates: start: 20041229, end: 20061201
  2. VALPROIC ACID [Suspect]
     Route: 048
     Dates: end: 20070111
  3. LITHIUM CARBONATE [Concomitant]
     Indication: DRUG USE FOR UNKNOWN INDICATION
     Dates: start: 20070111
  4. CLOZAPINE [Concomitant]
     Indication: DRUG USE FOR UNKNOWN INDICATION
     Dates: start: 20070111
  5. CLONAZEPAM [Concomitant]
     Indication: DRUG USE FOR UNKNOWN INDICATION

REACTIONS (5)
  - ABDOMINAL MASS [None]
  - ABORTION SPONTANEOUS [None]
  - BIPOLAR I DISORDER [None]
  - EXTRAPYRAMIDAL DISORDER [None]
  - POLYCYSTIC OVARIES [None]
